FAERS Safety Report 4475176-0 (Version None)
Quarter: 2004Q4

REPORT INFORMATION
  Report Type: 
  Country: None (occurrence: None)
  Receive Date: 20041015
  Receipt Date: 20040112
  Transmission Date: 20050328
  Serious: Yes (Hospitalization, Other)
  Sender: FDA-Public Use
  Company Number: DE-BRISTOL-MYERS SQUIBB COMPANY-12475166

PATIENT
  Age: 73 Year
  Sex: Male
  Weight: 74 kg

DRUGS (3)
  1. TAXOL [Suspect]
     Route: 042
     Dates: start: 20031226, end: 20031226
  2. CISPLATIN [Suspect]
     Route: 042
     Dates: start: 20031219, end: 20031219
  3. GEMCITABINE [Suspect]
     Route: 042
     Dates: start: 20031226, end: 20031226

REACTIONS (3)
  - DEHYDRATION [None]
  - LEUKOPENIA [None]
  - THROMBOCYTOPENIA [None]
